FAERS Safety Report 11422049 (Version 1)
Quarter: 2015Q3

REPORT INFORMATION
  Report Type: Spontaneous
  Country: US (occurrence: None)
  Receive Date: 20150825
  Receipt Date: 20150825
  Transmission Date: 20151125
  Serious: Yes (Other)
  Sender: FDA-Public Use
  Company Number: COR_00367_2015

PATIENT
  Age: 54 Year
  Sex: Male

DRUGS (2)
  1. ETOPOSIDE. [Suspect]
     Active Substance: ETOPOSIDE
     Indication: TESTIS CANCER
     Dosage: DF
  2. CISPLATIN. [Suspect]
     Active Substance: CISPLATIN
     Indication: TESTIS CANCER
     Dosage: DF

REACTIONS (6)
  - Carotid artery thrombosis [None]
  - Carotid artery occlusion [None]
  - Nausea [None]
  - Cerebral infarction [None]
  - Headache [None]
  - Hemianopia homonymous [None]
